FAERS Safety Report 4977384-9 (Version None)
Quarter: 2006Q2

REPORT INFORMATION
  Report Type: 
  Country: None (occurrence: None)
  Receive Date: 20060411
  Receipt Date: 20060406
  Transmission Date: 20061013
  Serious: Yes (Life-Threatening, Hospitalization)
  Sender: FDA-Public Use
  Company Number: 2006-140353-NL

PATIENT
  Age: 37 Year
  Sex: Female

DRUGS (3)
  1. MARVELON [Suspect]
     Indication: ENDOMETRIOSIS
     Dosage: DF
     Route: 048
     Dates: start: 20060202
  2. MARVELON [Suspect]
     Indication: MENORRHAGIA
     Dosage: DF
     Route: 048
     Dates: start: 20060202
  3. LEVOTHYROXINE SODIUM [Concomitant]

REACTIONS (3)
  - ACUTE MYOCARDIAL INFARCTION [None]
  - CORONARY ARTERY THROMBOSIS [None]
  - PRINZMETAL ANGINA [None]
